FAERS Safety Report 23445899 (Version 2)
Quarter: 2024Q1

REPORT INFORMATION
  Report Type: Spontaneous
  Country: US (occurrence: US)
  Receive Date: 20240126
  Receipt Date: 20240212
  Transmission Date: 20240409
  Serious: Yes (Hospitalization, Other)
  Sender: FDA-Public Use
  Company Number: US-HIKMA PHARMACEUTICALS USA INC.-US-H14001-24-00494

PATIENT
  Age: 67 Year
  Sex: Female

DRUGS (4)
  1. REGADENOSON [Suspect]
     Active Substance: REGADENOSON
     Indication: Product used for unknown indication
     Dosage: ONCE
     Route: 042
     Dates: start: 20240104
  2. ALBUTEROL SULFATE [Concomitant]
     Active Substance: ALBUTEROL SULFATE
     Indication: Product used for unknown indication
     Dosage: 2 PUFFS
     Route: 065
  3. AMINOPHYLLINE [Concomitant]
     Active Substance: AMINOPHYLLINE
     Indication: Product used for unknown indication
     Dosage: 50 MILLIGRAM
     Route: 042
  4. TECHNETIUM (99M TC) DTPA [Concomitant]
     Indication: Product used for unknown indication
     Dosage: 31 MILLICURIE
     Route: 065

REACTIONS (2)
  - Respiratory failure [Recovered/Resolved]
  - Bronchospasm [Recovered/Resolved]

NARRATIVE: CASE EVENT DATE: 20240104
